FAERS Safety Report 6807672-2 (Version None)
Quarter: 2010Q2

REPORT INFORMATION
  Report Type: 
  Country: None (occurrence: None)
  Receive Date: 20100629
  Receipt Date: 20081103
  Transmission Date: 20101027
  Serious: No
  Sender: FDA-Public Use
  Company Number: US-PFIZER INC-2008094160

PATIENT
  Sex: Male
  Weight: 145.45 kg

DRUGS (9)
  1. VIAGRA [Suspect]
     Indication: ERECTILE DYSFUNCTION
     Dates: start: 20081031
  2. LIPITOR [Concomitant]
  3. WARFARIN SODIUM [Concomitant]
  4. VITAMINS [Concomitant]
  5. FUROSEMIDE [Concomitant]
  6. POTASSIUM [Concomitant]
  7. BENAZEPRIL HYDROCHLORIDE [Concomitant]
  8. NORTRIPTYLINE [Concomitant]
  9. CARVEDILOL [Concomitant]

REACTIONS (1)
  - DRUG INEFFECTIVE [None]
